FAERS Safety Report 25728815 (Version 1)
Quarter: 2025Q3

REPORT INFORMATION
  Report Type: Spontaneous
  Country: PK (occurrence: PK)
  Receive Date: 20250826
  Receipt Date: 20250826
  Transmission Date: 20251020
  Serious: Yes (Disabling)
  Sender: NOVO NORDISK
  Company Number: PK-NOVOPROD-1505009

PATIENT
  Sex: Male

DRUGS (1)
  1. OZEMPIC [Suspect]
     Active Substance: SEMAGLUTIDE
     Indication: Weight control

REACTIONS (2)
  - Sudden visual loss [Not Recovered/Not Resolved]
  - Product use in unapproved indication [Unknown]
